FAERS Safety Report 21367487 (Version 1)
Quarter: 2022Q3

REPORT INFORMATION
  Report Type: Spontaneous
  Country: NO (occurrence: NO)
  Receive Date: 20220923
  Receipt Date: 20220923
  Transmission Date: 20221027
  Serious: Yes (Life-Threatening, Hospitalization, Disabling)
  Sender: FDA-Public Use
  Company Number: None

PATIENT
  Age: 53 Year
  Sex: Male
  Weight: 64 kg

DRUGS (7)
  1. PREDNISOLONE [Suspect]
     Active Substance: PREDNISOLONE
     Indication: Bacterial infection
     Dosage: ONLY GOT THIS AT THE HOSPITAL. DURATION : 1 DAY, PREDNISOLONE TAB 20 MG
     Dates: start: 2022, end: 2022
  2. VALIUM [Concomitant]
     Active Substance: DIAZEPAM
     Indication: Initial insomnia
     Dosage: STRENGTH : 5 MG, UNIT DOSE : 6 DF, N05BA01 - DIAZEPAM - ONGOING TREATMENTSUBTANCE NAME : DIAZEPAM ,
     Dates: start: 201405
  3. VALIUM [Concomitant]
     Active Substance: DIAZEPAM
     Indication: Fracture pain
  4. VALIUM [Concomitant]
     Active Substance: DIAZEPAM
     Indication: Muscle spasms
  5. LYRICA [Concomitant]
     Active Substance: PREGABALIN
     Indication: Product used for unknown indication
     Dosage: UNIT DOSE : 600 MG
  6. NITRAZEPAM [Concomitant]
     Active Substance: NITRAZEPAM
     Indication: Product used for unknown indication
     Dosage: STRENGTH : 5 MG, UNIT DOSE : 2.5 DF
  7. Paralgin [Concomitant]
     Indication: Product used for unknown indication
     Dosage: 4 DF

REACTIONS (2)
  - Pain [Not Recovered/Not Resolved]
  - Pain [Not Recovered/Not Resolved]

NARRATIVE: CASE EVENT DATE: 20220101
